FAERS Safety Report 4843722-0 (Version None)
Quarter: 2005Q4

REPORT INFORMATION
  Report Type: 
  Country: None (occurrence: None)
  Receive Date: 20051202
  Receipt Date: 20040726
  Transmission Date: 20060501
  Serious: Yes (Hospitalization)
  Sender: FDA-Public Use
  Company Number: JP-AVENTIS-200412454JP

PATIENT
  Age: 29 Year
  Sex: Female

DRUGS (7)
  1. ARAVA [Suspect]
     Indication: RHEUMATOID ARTHRITIS
     Route: 048
     Dates: start: 20040617, end: 20040619
  2. ARAVA [Suspect]
     Route: 048
     Dates: start: 20040620, end: 20040628
  3. ALFAROL [Concomitant]
     Indication: RHEUMATOID ARTHRITIS
     Route: 048
     Dates: end: 20040606
  4. ULGUT [Concomitant]
     Indication: GASTRIC ULCER
     Route: 048
  5. GASTER [Concomitant]
     Indication: GASTRIC ULCER
     Route: 048
  6. VOLTAREN [Concomitant]
     Indication: RHEUMATOID ARTHRITIS
     Route: 048
     Dates: start: 20000101
  7. SALIGREN [Concomitant]
     Indication: SJOGREN'S SYNDROME
     Route: 048

REACTIONS (8)
  - ALANINE AMINOTRANSFERASE INCREASED [None]
  - ALOPECIA [None]
  - ASPARTATE AMINOTRANSFERASE INCREASED [None]
  - BLOOD LACTATE DEHYDROGENASE INCREASED [None]
  - LIVER DISORDER [None]
  - PYREXIA [None]
  - STEVENS-JOHNSON SYNDROME [None]
  - WHITE BLOOD CELL COUNT DECREASED [None]
